FAERS Safety Report 5821692-6 (Version None)
Quarter: 2008Q3

REPORT INFORMATION
  Report Type: 
  Country: None (occurrence: None)
  Receive Date: 20080721
  Receipt Date: 20080704
  Transmission Date: 20090109
  Serious: Yes (Hospitalization)
  Sender: FDA-Public Use
  Company Number: 2008BI016571

PATIENT
  Sex: Female
  Weight: 51 kg

DRUGS (5)
  1. AVONEX [Suspect]
     Indication: MULTIPLE SCLEROSIS
     Dosage: 30 UG; QW; IM
     Route: 030
     Dates: start: 20020501
  2. LEVOTHYROX [Concomitant]
  3. IMOVANE [Concomitant]
  4. PRAZEPAM [Concomitant]
  5. FORLAX [Concomitant]

REACTIONS (9)
  - EPISTAXIS [None]
  - ESCHERICHIA INFECTION [None]
  - FUNGUS SEROLOGY TEST POSITIVE [None]
  - HAEMOPTYSIS [None]
  - LUNG DISORDER [None]
  - PNEUMOCOCCAL INFECTION [None]
  - PURULENCE [None]
  - THROMBOSIS [None]
  - WEIGHT DECREASED [None]
